FAERS Safety Report 5108578-X (Version None)
Quarter: 2006Q3

REPORT INFORMATION
  Report Type: 
  Country: None (occurrence: None)
  Receive Date: 20060919
  Receipt Date: 20060904
  Transmission Date: 20061208
  Serious: Yes (Hospitalization)
  Sender: FDA-Public Use
  Company Number: JP-MERCK-0609USA00793

PATIENT
  Age: 41 Year
  Sex: Male

DRUGS (9)
  1. PEPCID [Suspect]
     Route: 048
     Dates: end: 20060904
  2. ZOLPIDEM TARTRATE [Concomitant]
     Route: 048
     Dates: end: 20060904
  3. DOGMATYL [Concomitant]
     Route: 048
     Dates: end: 20060904
  4. PRIMPERAN TAB [Concomitant]
     Route: 048
     Dates: end: 20060904
  5. FLUVOXAMINE MALEATE [Concomitant]
     Route: 048
     Dates: end: 20060904
  6. SOLANAX [Concomitant]
     Route: 048
     Dates: end: 20060904
  7. MEILAX [Concomitant]
     Route: 048
     Dates: end: 20060904
  8. MECOBALAMIN [Concomitant]
     Route: 048
     Dates: end: 20060904
  9. ALINAMIN F [Concomitant]
     Route: 065
     Dates: end: 20060904

REACTIONS (1)
  - PANCREATITIS ACUTE [None]
